FAERS Safety Report 15660437 (Version 1)
Quarter: 2018Q4

REPORT INFORMATION
  Report Type: Spontaneous
  Country: US (occurrence: US)
  Receive Date: 20181115
  Receipt Date: 20181115
  Transmission Date: 20190205
  Serious: No
  Sender: FDA-Public Use
  Company Number: None

PATIENT
  Age: 70 Year
  Sex: Male

DRUGS (1)
  1. COSENTYX [Suspect]
     Active Substance: SECUKINUMAB
     Indication: PSORIATIC ARTHROPATHY
     Dates: start: 20181018

REACTIONS (4)
  - Condition aggravated [None]
  - Peripheral swelling [None]
  - Fatigue [None]
  - Arthritis [None]

NARRATIVE: CASE EVENT DATE: 20181018
